FAERS Safety Report 4804527-X (Version None)
Quarter: 2005Q4

REPORT INFORMATION
  Report Type: 
  Country: None (occurrence: None)
  Receive Date: 20051017
  Receipt Date: 20051006
  Transmission Date: 20060501
  Serious: Yes (Hospitalization)
  Sender: FDA-Public Use
  Company Number: HQWYE927707OCT05

PATIENT
  Age: 79 Year
  Sex: Female

DRUGS (1)
  1. CORDARONE [Suspect]
     Indication: ATRIAL FIBRILLATION
     Dosage: 200MG, ORAL
     Route: 048
     Dates: start: 20050405, end: 20050829

REACTIONS (4)
  - ALOPECIA [None]
  - DIZZINESS [None]
  - HYPERTHYROIDISM [None]
  - MUSCLE CONTRACTIONS INVOLUNTARY [None]
